FAERS Safety Report 15645606 (Version 1)
Quarter: 2018Q4

REPORT INFORMATION
  Report Type: Spontaneous
  Country: US (occurrence: US)
  Receive Date: 20181121
  Receipt Date: 20181121
  Transmission Date: 20190205
  Serious: No
  Sender: FDA-Public Use
  Company Number: US-ANIPHARMA-2018-US-002858

PATIENT
  Age: 50 Year
  Sex: Female
  Weight: 90.72 kg

DRUGS (4)
  1. DIPHENOXYLATE HYDROCHLORIDE + ATROPINE SULFATE (NON-SPECIFIC) [Suspect]
     Active Substance: ATROPINE SULFATE\DIPHENOXYLATE HYDROCHLORIDE
     Indication: COLITIS MICROSCOPIC
     Dosage: 2.5 MG TABLET THREE TIMES A DAY
     Route: 048
  2. HYDROCONDONE [Concomitant]
     Active Substance: HYDROCODONE
     Dosage: 325 MG BID
     Route: 048
  3. XANAX [Concomitant]
     Active Substance: ALPRAZOLAM
     Dosage: 0.5 MG 1 TAB PO BID PRN
     Route: 048
  4. DICYCLOMINE [Concomitant]
     Active Substance: DICYCLOMINE HYDROCHLORIDE
     Dosage: 20 MG PRN
     Route: 048

REACTIONS (1)
  - Drug ineffective [Unknown]
